FAERS Safety Report 5705564-3 (Version None)
Quarter: 2008Q2

REPORT INFORMATION
  Report Type: 
  Country: None (occurrence: None)
  Receive Date: 20080415
  Receipt Date: 20080407
  Transmission Date: 20081010
  Serious: Yes (Other)
  Sender: FDA-Public Use
  Company Number: JP-BRISTOL-MYERS SQUIBB COMPANY-14149223

PATIENT
  Age: 45 Year
  Sex: Female
  Weight: 56 kg

DRUGS (7)
  1. ABILIFY [Suspect]
     Indication: SCHIZOPHRENIA
     Route: 048
     Dates: start: 20080130, end: 20080213
  2. BROMAZEPAM [Concomitant]
     Route: 048
     Dates: start: 20070502
  3. SENNOSIDE [Concomitant]
     Route: 048
  4. TEPRENONE [Concomitant]
     Route: 048
     Dates: start: 20080130
  5. ALDIOXA [Concomitant]
     Route: 048
     Dates: end: 20080129
  6. OLANZAPINE [Concomitant]
     Route: 048
  7. BROTIZOLAM [Concomitant]
     Route: 048

REACTIONS (2)
  - HALLUCINATION, AUDITORY [None]
  - PERSECUTORY DELUSION [None]
